FAERS Safety Report 16053627 (Version 2)
Quarter: 2019Q1

REPORT INFORMATION
  Report Type: Spontaneous
  Country: US (occurrence: US)
  Receive Date: 20190308
  Receipt Date: 20190326
  Transmission Date: 20190418
  Serious: Yes (Hospitalization, Other)
  Sender: FDA-Public Use
  Company Number: US-SUNOVION-2019SUN000954

PATIENT
  Age: 14 Year
  Sex: Female

DRUGS (2)
  1. EFFEXOR [Interacting]
     Active Substance: VENLAFAXINE HYDROCHLORIDE
  2. LATUDA [Suspect]
     Active Substance: LURASIDONE HYDROCHLORIDE
     Route: 048

REACTIONS (9)
  - Intentional self-injury [Recovered/Resolved with Sequelae]
  - Scar [Unknown]
  - Bipolar disorder [Recovered/Resolved]
  - Post-traumatic stress disorder [Recovered/Resolved]
  - Borderline personality disorder [Recovered/Resolved]
  - Drug interaction [Unknown]
  - Migraine [Recovered/Resolved]
  - Malaise [Recovered/Resolved]
  - Insomnia [Recovered/Resolved]
